FAERS Safety Report 10038072 (Version 1)
Quarter: 2014Q1

REPORT INFORMATION
  Report Type: Spontaneous
  Country: DK (occurrence: FR)
  Receive Date: 20140326
  Receipt Date: 20140326
  Transmission Date: 20141002
  Serious: Yes (Congenital Anomaly)
  Sender: FDA-Public Use
  Company Number: FR-FRI-1000065838

PATIENT
  Age: 0 Day
  Sex: Male
  Weight: 2.98 kg

DRUGS (2)
  1. ESCITALOPRAM [Suspect]
     Dosage: 10 MG
     Route: 064
     Dates: start: 201302
  2. ESCITALOPRAM [Suspect]
     Dosage: 5 MG
     Route: 064

REACTIONS (3)
  - Congenital arterial malformation [Not Recovered/Not Resolved]
  - Urinary tract malformation [Not Recovered/Not Resolved]
  - Exposure during pregnancy [Not Recovered/Not Resolved]
